FAERS Safety Report 13677204 (Version 1)
Quarter: 2017Q2

REPORT INFORMATION
  Report Type: Spontaneous
  Country: US (occurrence: US)
  Receive Date: 20170622
  Receipt Date: 20170622
  Transmission Date: 20170830
  Serious: Yes (Other)
  Sender: FDA-Public Use
  Company Number: US-FRESENIUS KABI-FK201705229

PATIENT
  Age: 16 Year
  Sex: Female

DRUGS (2)
  1. PAMIDRONATE [Suspect]
     Active Substance: PAMIDRONATE DISODIUM
     Indication: OSTEOPOROSIS
     Route: 042
  2. PAMIDRONATE [Suspect]
     Active Substance: PAMIDRONATE DISODIUM
     Route: 042

REACTIONS (4)
  - Product use in unapproved indication [Recovered/Resolved]
  - Drug administered to patient of inappropriate age [Recovered/Resolved]
  - Stress fracture [Recovered/Resolved]
  - Femur fracture [Recovered/Resolved]
